FAERS Safety Report 9123318 (Version 2)
Quarter: 2013Q1

REPORT INFORMATION
  Report Type: Report from Study
  Country: US (occurrence: US)
  Receive Date: 20130227
  Receipt Date: 20130307
  Transmission Date: 20140127
  Serious: No
  Sender: FDA-Public Use
  Company Number: US-VERTEX PHARMACEUTICALS INC.-2013-002694

PATIENT
  Sex: Female
  Weight: 95 kg

DRUGS (6)
  1. VX-950 (TELAPREVIR) [Suspect]
     Indication: HEPATITIS C
     Dosage: 750 MG, TID
     Route: 048
     Dates: start: 20130215
  2. RIBAPAK [Suspect]
     Indication: HEPATITIS C
     Dosage: 600 MG, BID
     Route: 048
     Dates: start: 20130215
  3. PEGASYS [Suspect]
     Indication: HEPATITIS C
     Dosage: 180 ?G, QW
     Route: 058
     Dates: start: 20130215
  4. PROTONIX [Concomitant]
     Dosage: 40 MG, QD
     Route: 048
  5. METOPROLOL TARTRATE [Concomitant]
     Dosage: 100 MG, QD
     Route: 048
  6. CLONAZEPAM [Concomitant]
     Dosage: 0.5 MG, QD
     Route: 048

REACTIONS (8)
  - Dyspnoea [Unknown]
  - Anxiety [Unknown]
  - Asthenia [Unknown]
  - Fatigue [Unknown]
  - Haemorrhoids [Recovered/Resolved]
  - Rash [Unknown]
  - Nausea [Unknown]
  - Diarrhoea [Unknown]
